FAERS Safety Report 8579937-8 (Version None)
Quarter: 2012Q3

REPORT INFORMATION
  Report Type: 
  Country: None (occurrence: None)
  Receive Date: 20120808
  Receipt Date: 20120727
  Transmission Date: 20120928
  Serious: No
  Sender: FDA-Public Use
  Company Number: JP-ELI_LILLY_AND_COMPANY-JP201207008587

PATIENT
  Sex: Female

DRUGS (2)
  1. ZYPREXA [Suspect]
     Dosage: 2.5 MG, EACH MORNING
     Route: 048
  2. ZYPREXA [Suspect]
     Dosage: 10 MG, QD
     Route: 048

REACTIONS (4)
  - PULSE ABNORMAL [None]
  - ANAEMIA [None]
  - DIZZINESS POSTURAL [None]
  - MALAISE [None]
